FAERS Safety Report 8041401-2 (Version None)
Quarter: 2012Q1

REPORT INFORMATION
  Report Type: 
  Country: None (occurrence: None)
  Receive Date: 20120109
  Receipt Date: 20111226
  Transmission Date: 20120608
  Serious: Yes (Life-Threatening, Hospitalization, Other)
  Sender: FDA-Public Use
  Company Number: 2009AL001706

PATIENT
  Age: 56 Year
  Sex: Male
  Weight: 167.8309 kg

DRUGS (40)
  1. CELEBREX [Concomitant]
  2. DETROL [Concomitant]
  3. DITROPAN [Concomitant]
  4. EFFEXOR [Concomitant]
  5. PEPCID [Concomitant]
  6. PREVACID [Concomitant]
  7. TIAZAC [Concomitant]
  8. GLUCOPHAGE [Concomitant]
  9. MAGNESIUM HYDROXIDE TAB [Concomitant]
  10. MULTIPLE VITAMIN [Concomitant]
  11. TRAMADOL HCL [Concomitant]
  12. COUADIN [Concomitant]
  13. DULOCOLAX [Concomitant]
  14. LOVENOX [Concomitant]
  15. MILK OF MAGNESIA TAB [Concomitant]
  16. VALIUM [Concomitant]
  17. FERROUS SULFATE TAB [Concomitant]
  18. PERCOCET [Concomitant]
  19. DIGOXIN [Suspect]
     Indication: CARDIAC DISORDER
     Dosage: 0.25 MG;QD;PO
     Route: 048
     Dates: start: 19990202, end: 20010823
  20. COLACE [Concomitant]
  21. COREG [Concomitant]
  22. DURAGESIC-100 [Concomitant]
  23. GLIPIZIDE [Concomitant]
  24. PLAVIX [Concomitant]
  25. SOMA [Concomitant]
  26. VICODIN [Concomitant]
  27. CARDIZEM [Concomitant]
  28. AMBIEN [Concomitant]
  29. CYMBALTA [Concomitant]
  30. MYCOSTATIN [Concomitant]
  31. ZOLOFT [Concomitant]
  32. ALTACE [Concomitant]
  33. SODIUM PHOSPHATES [Concomitant]
  34. HUMULIN R [Concomitant]
  35. ASPIRIN [Concomitant]
  36. COMPAZINE [Concomitant]
  37. IMDUR [Concomitant]
  38. TIGAN [Concomitant]
  39. ZOCOR [Concomitant]
  40. ASPIRIN [Concomitant]

REACTIONS (73)
  - KNEE ARTHROPLASTY [None]
  - ARTHRALGIA [None]
  - ABDOMINAL PAIN [None]
  - PAIN IN EXTREMITY [None]
  - TACHYPNOEA [None]
  - ABDOMINAL PAIN UPPER [None]
  - JOINT EFFUSION [None]
  - BLOOD PRESSURE INCREASED [None]
  - CREPITATIONS [None]
  - CHRONIC OBSTRUCTIVE PULMONARY DISEASE [None]
  - FATIGUE [None]
  - MALAISE [None]
  - HYPERTENSION [None]
  - TRIGGER FINGER [None]
  - ATRIAL FIBRILLATION [None]
  - DEAFNESS [None]
  - SPUTUM DISCOLOURED [None]
  - CONTUSION [None]
  - FLATULENCE [None]
  - LEFT VENTRICULAR HYPERTROPHY [None]
  - BUNDLE BRANCH BLOCK RIGHT [None]
  - AORTIC VALVE INCOMPETENCE [None]
  - INITIAL INSOMNIA [None]
  - RHINORRHOEA [None]
  - ANGINA UNSTABLE [None]
  - DIZZINESS [None]
  - VENTRICULAR EXTRASYSTOLES [None]
  - BLOOD PRESSURE FLUCTUATION [None]
  - ACUTE MYOCARDIAL INFARCTION [None]
  - CHEST DISCOMFORT [None]
  - HYPERHIDROSIS [None]
  - HYPOTENSION [None]
  - DYSPNOEA EXERTIONAL [None]
  - FALL [None]
  - SPINAL OSTEOARTHRITIS [None]
  - LEFT ATRIAL DILATATION [None]
  - EXOSTOSIS [None]
  - AORTIC DILATATION [None]
  - ELECTROCARDIOGRAM POOR R-WAVE PROGRESSION [None]
  - TRICUSPID VALVE INCOMPETENCE [None]
  - TACHYCARDIA [None]
  - BLOOD PRESSURE DECREASED [None]
  - ANAEMIA POSTOPERATIVE [None]
  - OSTEOARTHRITIS [None]
  - MUSCULOSKELETAL PAIN [None]
  - NAUSEA [None]
  - CARDIOVASCULAR DISORDER [None]
  - ACROCHORDON [None]
  - HAEMOGLOBIN DECREASED [None]
  - CORONARY ARTERY STENOSIS [None]
  - DIASTOLIC DYSFUNCTION [None]
  - PALPITATIONS [None]
  - OCULAR HYPERAEMIA [None]
  - PAIN [None]
  - UNEVALUABLE EVENT [None]
  - TOXICITY TO VARIOUS AGENTS [None]
  - DEHYDRATION [None]
  - OEDEMA [None]
  - NODULE [None]
  - EYE DISCHARGE [None]
  - EAR PAIN [None]
  - ECONOMIC PROBLEM [None]
  - PULMONARY EMBOLISM [None]
  - TENOSYNOVITIS STENOSANS [None]
  - SLEEP APNOEA SYNDROME [None]
  - SINUSITIS [None]
  - MASS [None]
  - HEPATIC STEATOSIS [None]
  - LUNG NEOPLASM [None]
  - RAPID EYE MOVEMENTS SLEEP ABNORMAL [None]
  - RHINITIS [None]
  - OROPHARYNGEAL PAIN [None]
  - BONE DISORDER [None]
